FAERS Safety Report 24968707 (Version 1)
Quarter: 2025Q1

REPORT INFORMATION
  Report Type: Report from Study
  Country: US (occurrence: US)
  Receive Date: 20250214
  Receipt Date: 20250214
  Transmission Date: 20250409
  Serious: No
  Sender: AMNEAL
  Company Number: US-AMNEAL PHARMACEUTICALS-2024-AMRX-01541

PATIENT
  Sex: Male

DRUGS (3)
  1. CARBIDOPA\LEVODOPA [Suspect]
     Active Substance: CARBIDOPA\LEVODOPA
     Indication: Product used for unknown indication
     Dosage: (36.25-145MG) TAKE 1 CAPSULE BY MOUTH THREE TIMES A DAY
     Route: 048
     Dates: start: 20240423
  2. CARBIDOPA\LEVODOPA [Suspect]
     Active Substance: CARBIDOPA\LEVODOPA
     Dosage: (23.75-95MG) TAKE 1 CAPSULE BY MOUTH THREE TIMES A DAY
     Route: 048
  3. CARBIDOPA\LEVODOPA [Suspect]
     Active Substance: CARBIDOPA\LEVODOPA
     Dosage: (48.75-195 MG) TAKE 1 CAPSULE BY MOUTH THREE TIMES A DAY
     Route: 048
     Dates: start: 20240823

REACTIONS (4)
  - Nightmare [Unknown]
  - Dizziness [Unknown]
  - Constipation [Unknown]
  - Treatment noncompliance [Unknown]
